FAERS Safety Report 20354256 (Version 1)
Quarter: 2022Q1

REPORT INFORMATION
  Report Type: Spontaneous
  Country: US (occurrence: US)
  Receive Date: 20220120
  Receipt Date: 20220120
  Transmission Date: 20220423
  Serious: No
  Sender: FDA-Public Use
  Company Number: US-APOTEX-2022AP001943

PATIENT
  Age: 82 Year
  Sex: Male
  Weight: 81.633 kg

DRUGS (3)
  1. FLUTICASONE [Suspect]
     Active Substance: FLUTICASONE
     Indication: Sinus congestion
     Dosage: 4 DOSAGE FORM, QD (2 SPRAYSIN EACH NOSTRIL)
     Route: 065
  2. AZELASTINE HYDROCHLORIDE [Concomitant]
     Active Substance: AZELASTINE HYDROCHLORIDE
     Indication: Product used for unknown indication
     Dosage: UNK
     Route: 065
  3. AMLODIPINE [Concomitant]
     Active Substance: AMLODIPINE BESYLATE
     Indication: Hypertension
     Dosage: 5 MILLIGRAM, QD
     Route: 065

REACTIONS (1)
  - Herpes virus infection [Recovered/Resolved]
